FAERS Safety Report 5829226-7 (Version None)
Quarter: 2008Q2

REPORT INFORMATION
  Report Type: 
  Country: None (occurrence: None)
  Receive Date: 20080601
  Receipt Date: 20080220
  Transmission Date: 20081010
  Serious: No
  Sender: FDA-Public Use
  Company Number: US200802005021

PATIENT
  Age: 61 Year
  Sex: Male
  Weight: 99.8 kg

DRUGS (3)
  1. BYETTA [Suspect]
     Indication: TYPE 2 DIABETES MELLITUS
     Dosage: 5 UG, 2/D, SUBCUTANEOUS
     Route: 058
     Dates: start: 20080217
  2. LANTUS [Concomitant]
  3. AMARYL [Concomitant]

REACTIONS (4)
  - AGITATION [None]
  - BLOOD GLUCOSE DECREASED [None]
  - INSOMNIA [None]
  - WEIGHT DECREASED [None]
